FAERS Safety Report 17652020 (Version 2)
Quarter: 2021Q2

REPORT INFORMATION
  Report Type: Spontaneous
  Country: US (occurrence: US)
  Receive Date: 20200409
  Receipt Date: 20210414
  Transmission Date: 20210716
  Serious: No
  Sender: FDA-Public Use
  Company Number: US-FERRINGPH-2020FE00507

PATIENT
  Age: 65 Year
  Sex: Male
  Weight: 103.4 kg

DRUGS (5)
  1. FIRMAGON [Suspect]
     Active Substance: DEGARELIX ACETATE
     Indication: PRODUCT USED FOR UNKNOWN INDICATION
     Dosage: UNK
     Route: 058
     Dates: start: 20200124
  2. ADVIL [Concomitant]
     Active Substance: IBUPROFEN
     Indication: RHEUMATOID ARTHRITIS
  3. DIGOXIN. [Concomitant]
     Active Substance: DIGOXIN
     Indication: ATRIAL FIBRILLATION
     Dosage: 250 MG, 1 TIME DAILY
     Route: 065
  4. CARTIA XT [Concomitant]
     Active Substance: DILTIAZEM HYDROCHLORIDE
     Indication: ATRIAL FIBRILLATION
     Dosage: 120 MG, 1 TIME DAILY
     Route: 065
  5. ADVIL [Concomitant]
     Active Substance: IBUPROFEN
     Indication: OSTEOARTHRITIS
     Dosage: AS NEEDED
     Route: 065

REACTIONS (14)
  - Abdominal distension [Recovered/Resolved]
  - Aphasia [Recovered/Resolved]
  - Testicular swelling [Not Recovered/Not Resolved]
  - Injection site pain [Unknown]
  - Atrial fibrillation [Not Recovered/Not Resolved]
  - Prostatic specific antigen decreased [Unknown]
  - Injection site mass [Recovered/Resolved]
  - Pain [Recovered/Resolved]
  - Swollen tongue [Not Recovered/Not Resolved]
  - Injection site erythema [Unknown]
  - Injection site swelling [Unknown]
  - Injection site nodule [Unknown]
  - Loss of personal independence in daily activities [Not Recovered/Not Resolved]
  - Flushing [Not Recovered/Not Resolved]

NARRATIVE: CASE EVENT DATE: 202001
